FAERS Safety Report 16623212 (Version 1)
Quarter: 2019Q3

REPORT INFORMATION
  Report Type: Spontaneous
  Country: US (occurrence: US)
  Receive Date: 20190724
  Receipt Date: 20190724
  Transmission Date: 20191004
  Serious: No
  Sender: FDA-Public Use
  Company Number: US-ACCORD-123078

PATIENT
  Sex: Male
  Weight: 104.33 kg

DRUGS (1)
  1. ATORVASTATIN ACCORD [Suspect]
     Active Substance: ATORVASTATIN
     Indication: BLOOD CHOLESTEROL INCREASED
     Dosage: STRENGTH: 80 MG
     Dates: start: 20190408, end: 20190412

REACTIONS (3)
  - Product taste abnormal [Unknown]
  - Product odour abnormal [Unknown]
  - Product container issue [Unknown]
